FAERS Safety Report 5820152-6 (Version None)
Quarter: 2008Q3

REPORT INFORMATION
  Report Type: 
  Country: None (occurrence: None)
  Receive Date: 20080724
  Receipt Date: 20080715
  Transmission Date: 20090109
  Serious: Yes (Hospitalization, Other)
  Sender: FDA-Public Use
  Company Number: PHHY2008IS14148

PATIENT
  Age: 79 Year
  Sex: Female

DRUGS (2)
  1. VOLTAREN [Suspect]
     Indication: MUSCULOSKELETAL PAIN
     Route: 048
  2. SIMVASTATIN [Suspect]
     Route: 048

REACTIONS (14)
  - ABDOMINAL PAIN [None]
  - ANOREXIA [None]
  - ASTHENIA [None]
  - BLOOD CREATINE PHOSPHOKINASE INCREASED [None]
  - BLOOD CREATININE INCREASED [None]
  - DIARRHOEA [None]
  - DYSURIA [None]
  - FATIGUE [None]
  - HYPOTENSION [None]
  - MUSCULAR WEAKNESS [None]
  - MYASTHENIA GRAVIS [None]
  - NAUSEA [None]
  - RENAL FAILURE ACUTE [None]
  - WEIGHT DECREASED [None]
